FAERS Safety Report 6821711-4 (Version None)
Quarter: 2010Q3

REPORT INFORMATION
  Report Type: 
  Country: None (occurrence: None)
  Receive Date: 20100702
  Receipt Date: 20100622
  Transmission Date: 20110219
  Serious: Yes (Disabling)
  Sender: FDA-Public Use
  Company Number: 2010SP034483

PATIENT
  Age: 18 Year
  Sex: Female

DRUGS (1)
  1. IMPLANON [Suspect]
     Indication: CONTRACEPTION
     Dosage: SBDE
     Dates: start: 20090501, end: 20100607

REACTIONS (5)
  - ALOPECIA TOTALIS [None]
  - ANXIETY [None]
  - DEPRESSION [None]
  - EMOTIONAL DISTRESS [None]
  - WEIGHT DECREASED [None]
